FAERS Safety Report 21948578 (Version 3)
Quarter: 2023Q2

REPORT INFORMATION
  Report Type: Report from Study
  Country: CA (occurrence: CA)
  Receive Date: 20230203
  Receipt Date: 20230410
  Transmission Date: 20230721
  Serious: Yes (Hospitalization)
  Sender: FDA-Public Use
  Company Number: CA-JNJFOC-20230200607

PATIENT
  Age: 49 Year
  Sex: Male

DRUGS (1)
  1. REMICADE [Suspect]
     Active Substance: INFLIXIMAB
     Indication: Crohn^s disease
     Dosage: STOPPING REMICADE AND WILL SWITCH TO BIOSIMILAR INFLECTRA
     Route: 042
     Dates: start: 20181107, end: 20230217

REACTIONS (1)
  - COVID-19 [Unknown]
